FAERS Safety Report 6475472-1 (Version None)
Quarter: 2009Q4

REPORT INFORMATION
  Report Type: 
  Country: None (occurrence: None)
  Receive Date: 20091204
  Receipt Date: 20081230
  Transmission Date: 20100525
  Serious: No
  Sender: FDA-Public Use
  Company Number: US-AMGEN-KDL326398

PATIENT
  Sex: Female

DRUGS (1)
  1. ENBREL [Suspect]
     Indication: POLYMYALGIA RHEUMATICA
     Route: 058
     Dates: start: 20080930

REACTIONS (7)
  - CHILLS [None]
  - COUGH [None]
  - DYSPHONIA [None]
  - HYPERHIDROSIS [None]
  - MALAISE [None]
  - NASAL CONGESTION [None]
  - OROPHARYNGEAL PAIN [None]
